FAERS Safety Report 9136249 (Version 4)
Quarter: 2013Q2

REPORT INFORMATION
  Report Type: Report from Study
  Country: JP (occurrence: JP)
  Receive Date: 20130304
  Receipt Date: 20130411
  Transmission Date: 20140414
  Serious: Yes (Hospitalization)
  Sender: FDA-Public Use
  Company Number: JP-GLAXOSMITHKLINE-B0870145A

PATIENT
  Age: 69 Year
  Sex: Female
  Weight: 46 kg

DRUGS (14)
  1. LOPEMIN [Concomitant]
     Indication: DIARRHOEA
     Route: 048
     Dates: start: 20121115
  2. DERMOVATE [Concomitant]
     Indication: DERMATITIS ACNEIFORM
     Route: 061
     Dates: start: 20121121
  3. ISODINE GARGLE [Concomitant]
     Indication: INFECTION PROPHYLAXIS
     Route: 002
     Dates: start: 20121220
  4. PROCTOSEDYL [Concomitant]
     Indication: PROCTALGIA
     Route: 061
     Dates: start: 20130104
  5. CALONAL [Concomitant]
     Indication: PYREXIA
     Route: 048
     Dates: start: 20130119, end: 20130220
  6. TAKEPRON [Concomitant]
     Indication: DYSPEPSIA
     Route: 048
     Dates: start: 20130213
  7. TYKERB [Suspect]
     Indication: BREAST CANCER
     Route: 048
     Dates: start: 20121107, end: 20121218
  8. TYKERB [Suspect]
     Indication: BREAST CANCER
     Route: 048
     Dates: start: 20121219, end: 20130218
  9. HERCEPTIN [Suspect]
     Indication: BREAST CANCER
     Route: 042
     Dates: start: 20121107
  10. HERCEPTIN [Suspect]
     Indication: BREAST CANCER
     Route: 042
     Dates: start: 20121114, end: 20130123
  11. HERCEPTIN [Suspect]
     Indication: BREAST CANCER
     Route: 042
     Dates: start: 20130130, end: 20130213
  12. PACLITAXEL [Suspect]
     Indication: BREAST CANCER
     Route: 042
     Dates: start: 20121219, end: 20130130
  13. PACLITAXEL [Suspect]
     Indication: BREAST CANCER
     Route: 042
     Dates: start: 20130206, end: 20130213
  14. DEPAS [Concomitant]
     Indication: INSOMNIA
     Route: 048
     Dates: start: 1991

REACTIONS (3)
  - Pyrexia [Recovered/Resolved]
  - Decreased appetite [Recovered/Resolved]
  - Pneumonitis [Recovered/Resolved]
